FAERS Safety Report 24548194 (Version 3)
Quarter: 2024Q4

REPORT INFORMATION
  Report Type: Report from Study
  Country: IL (occurrence: IL)
  Receive Date: 20241025
  Receipt Date: 20241127
  Transmission Date: 20250115
  Serious: Yes (Hospitalization, Other)
  Sender: ABBVIE
  Company Number: IL-ABBVIE-5974721

PATIENT
  Age: 55 Year
  Sex: Female

DRUGS (2)
  1. SKYRIZI [Suspect]
     Active Substance: RISANKIZUMAB-RZAA
     Indication: Crohn^s disease
     Dosage: FORM STRENGTH: 360 MILLIGRAM
     Route: 058
     Dates: start: 20240215, end: 20240901
  2. SKYRIZI [Suspect]
     Active Substance: RISANKIZUMAB-RZAA
     Dosage: 360MG, OBI
     Route: 058
     Dates: start: 20241121

REACTIONS (4)
  - Intestinal obstruction [Recovered/Resolved]
  - Postoperative wound infection [Recovered/Resolved]
  - Secretion discharge [Recovered/Resolved]
  - Small intestinal resection [Recovered/Resolved]

NARRATIVE: CASE EVENT DATE: 20240901
